FAERS Safety Report 7818559-0 (Version None)
Quarter: 2011Q4

REPORT INFORMATION
  Report Type: 
  Country: None (occurrence: None)
  Receive Date: 20111017
  Receipt Date: 20111007
  Transmission Date: 20120403
  Serious: Yes (Disabling, Other)
  Sender: FDA-Public Use
  Company Number: US-ASTRAZENECA-2011SE07905

PATIENT
  Age: 78 Year
  Sex: Male

DRUGS (16)
  1. CRESTOR [Suspect]
     Route: 048
  2. ASMINAX [Concomitant]
     Route: 055
  3. NEXIUM [Concomitant]
  4. SEROQUEL [Concomitant]
  5. GEPULOX PATCH [Concomitant]
  6. SPIRIVA [Concomitant]
     Route: 055
  7. ASPIRIN [Concomitant]
  8. COUMADIN [Concomitant]
  9. COLACE [Concomitant]
  10. WEPACOLD [Concomitant]
  11. OS CAL [Concomitant]
  12. PAXIL [Concomitant]
  13. TOPROL-XL [Suspect]
     Route: 048
  14. SINEMET [Concomitant]
  15. MULTI-VITAMIN [Concomitant]
  16. FIBERCON [Concomitant]

REACTIONS (7)
  - MUSCLE SPASMS [None]
  - APHAGIA [None]
  - HALLUCINATION [None]
  - PARKINSON'S DISEASE [None]
  - ABASIA [None]
  - DRUG HYPERSENSITIVITY [None]
  - PARALYSIS [None]
